FAERS Safety Report 5704065-6 (Version None)
Quarter: 2008Q2

REPORT INFORMATION
  Report Type: 
  Country: None (occurrence: None)
  Receive Date: 20080414
  Receipt Date: 20080408
  Transmission Date: 20081010
  Serious: Yes (Other)
  Sender: FDA-Public Use
  Company Number: US-BAYER-200819329NA

PATIENT
  Age: 67 Year
  Sex: Male

DRUGS (1)
  1. MAGNEVIST SINGLE USE [Suspect]
     Indication: PAIN
     Dosage: TOTAL DAILY DOSE: 20 ML  UNIT DOSE: 20 ML
     Route: 042
     Dates: start: 20080404, end: 20080404

REACTIONS (3)
  - NAUSEA [None]
  - OEDEMA [None]
  - URTICARIA [None]
